FAERS Safety Report 9799924 (Version 1)
Quarter: 2014Q1

REPORT INFORMATION
  Report Type: Report from Study
  Country: US (occurrence: US)
  Receive Date: 20140106
  Receipt Date: 20140106
  Transmission Date: 20141002
  Serious: Yes (Other)
  Sender: FDA-Public Use
  Company Number: US-US-EMD SERONO, INC.-7260864

PATIENT
  Sex: Male
  Weight: 38 kg

DRUGS (8)
  1. SAIZEN [(SOMATROPIN (RDNA ORIGIN) FOR INJECTION)] [Suspect]
     Indication: GROWTH HORMONE DEFICIENCY
     Route: 058
     Dates: start: 20080212
  2. SAIZEN [(SOMATROPIN (RDNA ORIGIN) FOR INJECTION)] [Suspect]
     Route: 058
  3. ARIMIDEX [Concomitant]
     Indication: GROWTH ACCELERATED
     Route: 048
  4. OMNICEF                            /00497602/ [Concomitant]
     Indication: PRODUCT USED FOR UNKNOWN INDICATION
  5. CLINDAMYCIN [Concomitant]
     Indication: PRODUCT USED FOR UNKNOWN INDICATION
  6. SUPRAX                             /00821801/ [Concomitant]
     Indication: PRODUCT USED FOR UNKNOWN INDICATION
  7. AMOXICILLIN [Concomitant]
     Indication: PRODUCT USED FOR UNKNOWN INDICATION
  8. SULFA                              /00150702/ [Concomitant]
     Indication: PRODUCT USED FOR UNKNOWN INDICATION

REACTIONS (2)
  - Traumatic fracture [Unknown]
  - Decreased appetite [Unknown]
